FAERS Safety Report 9134748 (Version 1)
Quarter: 2013Q1

REPORT INFORMATION
  Report Type: Spontaneous
  Country: US (occurrence: US)
  Receive Date: 20130304
  Receipt Date: 20130304
  Transmission Date: 20140127
  Serious: Yes (Other)
  Sender: FDA-Public Use
  Company Number: US-PFIZER INC-2013073929

PATIENT
  Sex: Male

DRUGS (1)
  1. CHANTIX [Suspect]
     Dosage: UNK
     Dates: start: 2013

REACTIONS (7)
  - Suicidal ideation [Unknown]
  - Depression [Unknown]
  - Insomnia [Unknown]
  - Restlessness [Unknown]
  - Paraesthesia [Unknown]
  - Pruritus [Unknown]
  - Abnormal behaviour [Unknown]
